FAERS Safety Report 20143629 (Version 2)
Quarter: 2022Q2

REPORT INFORMATION
  Report Type: Report from Study
  Country: US (occurrence: None)
  Receive Date: 20211203
  Receipt Date: 20220526
  Transmission Date: 20220721
  Serious: Yes (Hospitalization, Other)
  Sender: FDA-Public Use
  Company Number: US-Merck Healthcare KGaA-9282360

PATIENT
  Sex: Female

DRUGS (1)
  1. REBIF [Suspect]
     Active Substance: INTERFERON BETA-1A
     Indication: Primary progressive multiple sclerosis
     Route: 058
     Dates: start: 20021226

REACTIONS (7)
  - Unevaluable event [Unknown]
  - Post procedural haemorrhage [Unknown]
  - Hospitalisation [Unknown]
  - Panic disorder [Unknown]
  - Peroneal nerve palsy [Recovering/Resolving]
  - Limb discomfort [Unknown]
  - Off label use [Unknown]
